FAERS Safety Report 5409678-7 (Version None)
Quarter: 2007Q3

REPORT INFORMATION
  Report Type: 
  Country: None (occurrence: None)
  Receive Date: 20070809
  Receipt Date: 20070802
  Transmission Date: 20080115
  Serious: Yes (Other)
  Sender: FDA-Public Use
  Company Number: US-ELI_LILLY_AND_COMPANY-US200708000486

PATIENT
  Age: 52 Year
  Sex: Female

DRUGS (2)
  1. XIGRIS [Suspect]
     Indication: SEPTIC SHOCK
     Route: 042
     Dates: start: 20070701, end: 20070701
  2. ANTIBIOTICS [Concomitant]
     Indication: SEPTIC SHOCK
     Dates: start: 20070101, end: 20070101

REACTIONS (4)
  - ACTIVATED PARTIAL THROMBOPLASTIN TIME PROLONGED [None]
  - COAGULATION FACTOR XI LEVEL DECREASED [None]
  - COAGULATION FACTOR XII LEVEL DECREASED [None]
  - PLATELET COUNT DECREASED [None]
